FAERS Safety Report 20147585 (Version 2)
Quarter: 2021Q4

REPORT INFORMATION
  Report Type: Spontaneous
  Country: US (occurrence: US)
  Receive Date: 20211203
  Receipt Date: 20211214
  Transmission Date: 20220303
  Serious: No
  Sender: FDA-Public Use
  Company Number: US-SA-SAC20211127000563

PATIENT
  Age: 34 Year
  Sex: Male

DRUGS (4)
  1. DUPIXENT [Suspect]
     Active Substance: DUPILUMAB
     Indication: Dermatitis atopic
     Dosage: 300 MG, QOW
     Route: 058
     Dates: start: 202109
  2. DUPIXENT [Suspect]
     Active Substance: DUPILUMAB
     Dosage: UNK (LOADING DOSE)
     Route: 058
     Dates: start: 2021
  3. TRAZODONE HCL [Concomitant]
     Active Substance: TRAZODONE HYDROCHLORIDE
     Dosage: 100 MG
  4. ADVIL [Concomitant]
     Active Substance: IBUPROFEN
     Dosage: 200 MG

REACTIONS (3)
  - Eczema [Unknown]
  - Product use issue [Unknown]
  - Inappropriate schedule of product administration [Unknown]
